FAERS Safety Report 10213208 (Version 1)
Quarter: 2014Q2

REPORT INFORMATION
  Report Type: Spontaneous
  Country: US (occurrence: US)
  Receive Date: 20140603
  Receipt Date: 20140603
  Transmission Date: 20141212
  Serious: Yes (Death)
  Sender: FDA-Public Use
  Company Number: US-BRISTOL-MYERS SQUIBB COMPANY-20845335

PATIENT
  Sex: Female

DRUGS (1)
  1. ELIQUIS [Suspect]
     Route: 048

REACTIONS (2)
  - Fall [Fatal]
  - Haemorrhage [Fatal]
